FAERS Safety Report 4381384-X (Version None)
Quarter: 2004Q2

REPORT INFORMATION
  Report Type: 
  Country: None (occurrence: None)
  Receive Date: 20040617
  Receipt Date: 20040617
  Transmission Date: 20050107
  Serious: Yes (Hospitalization)
  Sender: FDA-Public Use
  Company Number: None

PATIENT
  Sex: Male

DRUGS (2)
  1. ZONISAMIDE 100 MG -ZONEGRAN- [Suspect]
     Indication: CONVULSION
     Dosage: 100 MG HS ORAL
     Route: 048
     Dates: start: 20040501, end: 20040508
  2. VALPROIC ACID [Concomitant]

REACTIONS (4)
  - ABNORMAL BEHAVIOUR [None]
  - AGGRESSION [None]
  - HALLUCINATIONS, MIXED [None]
  - SCHIZOPHRENIA, PARANOID TYPE [None]
